FAERS Safety Report 8339164-6 (Version None)
Quarter: 2012Q2

REPORT INFORMATION
  Report Type: 
  Country: None (occurrence: None)
  Receive Date: 20120502
  Receipt Date: 20120417
  Transmission Date: 20120825
  Serious: Yes (Hospitalization, Disabling, Other)
  Sender: FDA-Public Use
  Company Number: 2010MA002232

PATIENT
  Sex: Female

DRUGS (33)
  1. ALPRAZOLAM [Concomitant]
  2. ATIVAN [Concomitant]
  3. CLONIDINE [Concomitant]
  4. IBUPROFEN [Concomitant]
  5. LEVAQUIN [Concomitant]
  6. NORVASC [Concomitant]
  7. ULTRAM [Concomitant]
  8. AZITHROMYCIN [Concomitant]
  9. CARDENE [Concomitant]
  10. LYRICA [Concomitant]
  11. METOPROLOL TARTRATE [Concomitant]
  12. ERY-TAB [Concomitant]
  13. FLUCONAZOLE [Concomitant]
  14. HYDROCHLOROTHIAZIDE [Concomitant]
  15. LORTAB [Concomitant]
  16. NITROGLYCERIN [Concomitant]
  17. TRAMADOL HYDROCHLORIDE [Concomitant]
  18. ALBUTEROL [Concomitant]
  19. PROPDXYPHENE-N100/APAP [Concomitant]
  20. ASPIRIN [Concomitant]
  21. PROMETHAZINE [Concomitant]
  22. AMBIEN [Concomitant]
  23. GUAIFENESIN [Concomitant]
  24. METOCLOPRAMIDE [Suspect]
     Indication: NAUSEA
     Dosage: 10 MG;IM
     Route: 030
     Dates: start: 20051011, end: 20090528
  25. ADVAIR DISKUS 100/50 [Concomitant]
  26. HYDROCODONE BITARTRATE AND ACETAMINOPHEN [Concomitant]
  27. LISINOPRIL [Concomitant]
  28. NEBULIZER TREATMENTS [Concomitant]
  29. STEROIDS [Concomitant]
  30. ACETAMINOPHEN W/ CODEINE [Concomitant]
  31. ANTIBIOTICS [Concomitant]
  32. METHYLPREDNISOLONE [Concomitant]
  33. MULTI-VITAMIN [Concomitant]

REACTIONS (36)
  - EXTRAPYRAMIDAL DISORDER [None]
  - SINUSITIS [None]
  - URINARY TRACT INFECTION [None]
  - ASTHENIA [None]
  - TENSION HEADACHE [None]
  - HYPERGLYCAEMIA [None]
  - VERTIGO [None]
  - PAIN IN EXTREMITY [None]
  - MENTAL DISORDER [None]
  - CARDIOMEGALY [None]
  - MASTOIDITIS [None]
  - DEHYDRATION [None]
  - NERVOUS SYSTEM DISORDER [None]
  - DRUG ABUSER [None]
  - TREATMENT NONCOMPLIANCE [None]
  - EYE PAIN [None]
  - HEADACHE [None]
  - CHEST PAIN [None]
  - BRONCHITIS [None]
  - WHEEZING [None]
  - NON-CARDIAC CHEST PAIN [None]
  - PAIN [None]
  - ASTHMA [None]
  - NAUSEA [None]
  - DIVERTICULUM [None]
  - HYPOKALAEMIA [None]
  - DYSPNOEA [None]
  - COUGH [None]
  - DIZZINESS [None]
  - TARDIVE DYSKINESIA [None]
  - DECREASED APPETITE [None]
  - ANXIETY [None]
  - BACK PAIN [None]
  - ACTIVITIES OF DAILY LIVING IMPAIRED [None]
  - HYPERTENSION [None]
  - ABDOMINAL PAIN [None]
